FAERS Safety Report 21932292 (Version 8)
Quarter: 2025Q1

REPORT INFORMATION
  Report Type: Spontaneous
  Country: US (occurrence: US)
  Receive Date: 20230131
  Receipt Date: 20250304
  Transmission Date: 20250409
  Serious: No
  Sender: PFIZER
  Company Number: US-PFIZER INC-PV202300017542

PATIENT
  Age: 76 Year
  Sex: Female

DRUGS (2)
  1. IBRANCE [Suspect]
     Active Substance: PALBOCICLIB
     Indication: Breast cancer female
  2. IBRANCE [Suspect]
     Active Substance: PALBOCICLIB
     Dosage: 1 DF, DAILY

REACTIONS (6)
  - Endodontic procedure [Unknown]
  - Fatigue [Unknown]
  - Hearing disability [Unknown]
  - Asthenia [Unknown]
  - Mobility decreased [Unknown]
  - Urticaria [Recovered/Resolved]
